FAERS Safety Report 4683880-4 (Version None)
Quarter: 2005Q2

REPORT INFORMATION
  Report Type: 
  Country: None (occurrence: None)
  Receive Date: 20050606
  Receipt Date: 20050606
  Transmission Date: 20051028
  Serious: Yes (Other)
  Sender: FDA-Public Use
  Company Number: None

PATIENT
  Age: 44 Year
  Sex: Female

DRUGS (1)
  1. HYDROCODONE 5/500 [Suspect]
     Indication: POST PROCEDURAL PAIN
     Dosage: ONE PO Q 4-6 HRS
     Route: 048
     Dates: start: 20050526

REACTIONS (3)
  - INSOMNIA [None]
  - PHARMACEUTICAL PRODUCT COMPLAINT [None]
  - PRURITUS [None]
